FAERS Safety Report 7479318-4 (Version None)
Quarter: 2011Q2

REPORT INFORMATION
  Report Type: 
  Country: None (occurrence: None)
  Receive Date: 20110513
  Receipt Date: 20110509
  Transmission Date: 20111010
  Serious: Yes (Hospitalization, Other)
  Sender: FDA-Public Use
  Company Number: US-ABBOTT-11P-163-0724374-00

PATIENT
  Sex: Female
  Weight: 51.756 kg

DRUGS (24)
  1. FOLIC ACID [Concomitant]
     Indication: VITAMIN SUPPLEMENTATION
     Route: 048
  2. PREDNISONE [Concomitant]
     Indication: SWELLING
     Route: 048
  3. MICROLAX [Concomitant]
     Indication: CONSTIPATION
     Route: 048
  4. UNKNOWN VAGINAL CREAM [Concomitant]
     Indication: VULVOVAGINAL DRYNESS
     Route: 067
  5. TOVIAZ [Concomitant]
     Indication: HYPERTONIC BLADDER
     Route: 048
  6. REQUIP [Concomitant]
     Indication: RESTLESS LEGS SYNDROME
     Route: 048
  7. SOMA [Concomitant]
     Indication: MUSCLE SPASMS
     Route: 048
  8. PRILOSEC [Concomitant]
     Indication: GASTRIC DISORDER
     Route: 050
  9. WELLBUTRIN [Concomitant]
     Indication: PRODUCT USED FOR UNKNOWN INDICATION
     Dosage: 150 MG IN THE MORNING AND 75 MG AT 2 PM.
     Route: 048
  10. COZAAR [Concomitant]
     Indication: RENAL DISORDER
     Route: 048
  11. CALCIUM [Concomitant]
     Indication: MINERAL SUPPLEMENTATION
     Route: 048
  12. PLAVIX [Concomitant]
     Indication: TRANSIENT ISCHAEMIC ATTACK
     Route: 048
     Dates: start: 20090101
  13. ACETAMINOPHEN [Concomitant]
     Indication: PAIN
     Route: 048
  14. CITRULLINE [Concomitant]
     Indication: SUPPLEMENTATION THERAPY
     Route: 048
  15. METHOTREXATE [Concomitant]
     Indication: RHEUMATOID ARTHRITIS
     Dosage: 6 TABS ON THURSDAYS
     Route: 048
  16. SYNTHROID [Concomitant]
     Indication: HYPOTHYROIDISM
  17. ACTOS [Concomitant]
     Indication: DIABETES MELLITUS
     Route: 048
  18. MULTI-VITAMIN [Concomitant]
     Indication: SUPPLEMENTATION THERAPY
     Route: 048
  19. HUMIRA [Suspect]
     Indication: RHEUMATOID ARTHRITIS
     Route: 058
     Dates: start: 20070808
  20. NOVOLOG MIX 70/30 [Concomitant]
     Indication: DIABETES MELLITUS
     Dosage: TWICE DAILY AS NEEDED PER SLIDING SCALE
     Route: 058
  21. TRAZODONE HCL [Concomitant]
     Indication: FEELING OF RELAXATION
     Route: 048
  22. SIMVASTATIN [Concomitant]
     Indication: BLOOD CHOLESTEROL INCREASED
     Route: 048
  23. TOPAMAX [Concomitant]
     Indication: CONVULSION
     Dosage: 100 MG IN THE MORNING AND 200 MG AT BEDTIME.
     Route: 048
  24. AMBIEN [Concomitant]
     Indication: INSOMNIA
     Route: 048

REACTIONS (9)
  - CHRONIC OBSTRUCTIVE PULMONARY DISEASE [None]
  - ARTHRALGIA [None]
  - ELECTROLYTE IMBALANCE [None]
  - DEHYDRATION [None]
  - ABASIA [None]
  - GAIT DISTURBANCE [None]
  - INFLUENZA LIKE ILLNESS [None]
  - ASTHENIA [None]
  - INJECTION SITE HAEMATOMA [None]
